FAERS Safety Report 15029520 (Version 1)
Quarter: 2018Q2

REPORT INFORMATION
  Report Type: Spontaneous
  Country: US (occurrence: US)
  Receive Date: 20180529
  Receipt Date: 20180529
  Transmission Date: 20180711
  Serious: Yes (Other)
  Sender: FDA-Public Use
  Company Number: None

PATIENT
  Age: 76 Year
  Sex: Male
  Weight: 108.41 kg

DRUGS (18)
  1. OXYBUTYNIN. [Concomitant]
     Active Substance: OXYBUTYNIN CHLORIDE
  2. FLUTICASONE PROPIONATE. [Concomitant]
     Active Substance: FLUTICASONE PROPIONATE
  3. ASMANEX INHALOR [Concomitant]
  4. LISIIVOPRIL [Concomitant]
  5. RANITIDINE. [Concomitant]
     Active Substance: RANITIDINE
  6. ASPIRIN. [Suspect]
     Active Substance: ASPIRIN
  7. TORSEMIDE, GENERIC FOR DEMADEX [Suspect]
     Active Substance: TORSEMIDE
     Indication: OEDEMA PERIPHERAL
     Dosage: ?          QUANTITY:1 DF DOSAGE FORM;?
     Route: 048
     Dates: start: 20180222, end: 20180315
  8. CARTIA XT [Concomitant]
     Active Substance: DILTIAZEM HYDROCHLORIDE
  9. THIAZIDE [Concomitant]
     Active Substance: UNSPECIFIED INGREDIENT
  10. HYDROCHLOR [Concomitant]
  11. WARFARIN SODIUM. [Concomitant]
     Active Substance: WARFARIN SODIUM
  12. OMEPRAZOLE DR [Concomitant]
     Active Substance: OMEPRAZOLE
  13. FLUCINONIDE [Concomitant]
  14. CLOTIIMAZOLE [Concomitant]
  15. PEPTO-BISMAL [Concomitant]
  16. IMODIUM [Concomitant]
     Active Substance: LOPERAMIDE HYDROCHLORIDE
  17. LORATIDINE [Concomitant]
     Active Substance: LORATADINE
  18. ACETAMINOPHEN. [Concomitant]
     Active Substance: ACETAMINOPHEN

REACTIONS (3)
  - Sleep disorder [None]
  - Nocturia [None]
  - Dehydration [None]

NARRATIVE: CASE EVENT DATE: 20180315
